FAERS Safety Report 9752434 (Version 1)
Quarter: 2013Q4

REPORT INFORMATION
  Report Type: Spontaneous
  Country: US (occurrence: US)
  Receive Date: 20131213
  Receipt Date: 20131213
  Transmission Date: 20140711
  Serious: No
  Sender: FDA-Public Use
  Company Number: US-PFIZER INC-2013353189

PATIENT
  Age: 56 Year
  Sex: Female
  Weight: 113 kg

DRUGS (1)
  1. XALKORI [Suspect]
     Indication: LUNG NEOPLASM MALIGNANT
     Dosage: UNK, 2X/DAY
     Route: 048
     Dates: start: 201208

REACTIONS (3)
  - Photopsia [Unknown]
  - Nausea [Unknown]
  - Breast mass [Unknown]
